FAERS Safety Report 8011923 (Version 2)
Quarter: 2012Q4

REPORT INFORMATION
  Report Type: 
  Country: US (occurrence: US)
  Receive Date: 20110628
  Receipt Date: 20120905
  Transmission Date: 20130627
  Serious: Yes (Other)
  Sender: FDA-Public Use
  Company Number: US-BAYER-2011-052063

PATIENT
  Age: 22 Year
  Sex: Female
  Weight: 60.77 kg

DRUGS (8)
  1. YASMIN [Suspect]
     Indication: CONTRACEPTION
     Dosage: UNK
     Dates: start: 200204, end: 200401
  2. YAZ [Suspect]
  3. ZOLOFT [Concomitant]
     Dosage: UNK
     Dates: start: 2002, end: 2005
  4. CLARITIN [Concomitant]
     Dosage: UNK
     Dates: start: 2004
  5. ZITHROMAX [Concomitant]
  6. AMOXICILLIN [Concomitant]
  7. BACTRIM [Concomitant]
  8. IBUPROFEN [Concomitant]

REACTIONS (14)
  - Cholecystectomy [None]
  - Cholecystitis chronic [None]
  - Pain [None]
  - Scar [None]
  - Medical diet [None]
  - Abdominal distension [None]
  - Flatulence [None]
  - Constipation [None]
  - Diarrhoea [None]
  - Anxiety [Unknown]
  - Depression [None]
  - Dyspepsia [None]
  - Injury [Unknown]
  - Emotional distress [Unknown]
